FAERS Safety Report 8617321-9 (Version None)
Quarter: 2012Q3

REPORT INFORMATION
  Report Type: 
  Country: None (occurrence: None)
  Receive Date: 20120823
  Receipt Date: 20120810
  Transmission Date: 20120928
  Serious: No
  Sender: FDA-Public Use
  Company Number: US-ASTRAZENECA-2011SE21238

PATIENT
  Age: 45 Year
  Sex: Female
  Weight: 70.3 kg

DRUGS (9)
  1. PRILOSEC [Concomitant]
  2. OXYCODONE HCL [Concomitant]
     Dosage: QID
  3. LYRICA [Concomitant]
  4. CARAFATE [Concomitant]
  5. CLONAZEPAM [Concomitant]
     Dosage: DAILY
  6. SEROQUEL [Suspect]
     Route: 048
  7. SOMA [Concomitant]
  8. ZOLOFT [Concomitant]
  9. SEROQUEL [Suspect]
     Indication: BIPOLAR DISORDER
     Route: 048
     Dates: start: 20070101

REACTIONS (10)
  - DEPRESSION [None]
  - GASTROOESOPHAGEAL REFLUX DISEASE [None]
  - DRUG DOSE OMISSION [None]
  - CRYING [None]
  - NERVOUSNESS [None]
  - WEIGHT INCREASED [None]
  - ANXIETY [None]
  - INSOMNIA [None]
  - INTENTIONAL DRUG MISUSE [None]
  - FEELING ABNORMAL [None]
